FAERS Safety Report 5059628-0 (Version None)
Quarter: 2006Q3

REPORT INFORMATION
  Report Type: 
  Country: None (occurrence: None)
  Receive Date: 20060724
  Receipt Date: 20060712
  Transmission Date: 20061208
  Serious: Yes (Hospitalization)
  Sender: FDA-Public Use
  Company Number: PHFR2006GB02218

PATIENT
  Age: 50 Year
  Sex: Female

DRUGS (6)
  1. DICLOFENAC [Suspect]
     Indication: PAIN IN EXTREMITY
     Dosage: 100 MG, QD
     Route: 048
     Dates: start: 20060602, end: 20060602
  2. ASCORBIC ACID [Concomitant]
     Indication: ARTHRALGIA
     Dosage: UNK, QD
     Route: 048
  3. ACETAMINOPHEN W/ CODEINE [Concomitant]
     Indication: ARTHRALGIA
     Dosage: UNK, PRN
     Route: 048
     Dates: start: 20050101
  4. COD-LIVER OIL [Concomitant]
     Dosage: UNK, QD
     Route: 048
  5. EVENING PRIMROSE OIL [Concomitant]
     Indication: ARTHRALGIA
     Dosage: UNK, QD
     Route: 048
  6. GLUCOSAMINE [Concomitant]
     Indication: ARTHRALGIA
     Dosage: UNK, QD
     Route: 048

REACTIONS (7)
  - AGGRESSION [None]
  - FACIAL PALSY [None]
  - INCOHERENT [None]
  - LOSS OF CONSCIOUSNESS [None]
  - NO THERAPEUTIC RESPONSE [None]
  - PALLOR [None]
  - PRURITUS [None]
